FAERS Safety Report 5123440-4 (Version None)
Quarter: 2006Q4

REPORT INFORMATION
  Report Type: 
  Country: None (occurrence: None)
  Receive Date: 20061005
  Receipt Date: 20060926
  Transmission Date: 20070319
  Serious: Yes (Disabling)
  Sender: FDA-Public Use
  Company Number: 2006115640

PATIENT
  Age: 33 Year
  Sex: Male

DRUGS (2)
  1. XALATAN [Suspect]
     Indication: GLAUCOMA
     Dosage: 1 DROP/EYE (FREQUENCY: DAILY), OPHTHALMIC
     Route: 047
     Dates: start: 20011214, end: 20060418
  2. ANALGESICS [Concomitant]

REACTIONS (1)
  - ORGASM ABNORMAL [None]
